FAERS Safety Report 15810650 (Version 1)
Quarter: 2019Q1

REPORT INFORMATION
  Report Type: Spontaneous
  Country: US (occurrence: US)
  Receive Date: 20190111
  Receipt Date: 20190111
  Transmission Date: 20190417
  Serious: Yes (Other)
  Sender: FDA-Public Use
  Company Number: US-ROCHE-585732

PATIENT
  Age: 34 Year
  Sex: Female

DRUGS (15)
  1. PREDNISONE. [Suspect]
     Active Substance: PREDNISONE
     Indication: MYOSITIS
     Route: 065
     Dates: start: 199706
  2. PREDNISONE. [Suspect]
     Active Substance: PREDNISONE
     Route: 065
     Dates: start: 200606, end: 200606
  3. PREDNISONE. [Suspect]
     Active Substance: PREDNISONE
     Route: 065
     Dates: start: 200606, end: 2006
  4. RIFAMPICIN [Suspect]
     Active Substance: RIFAMPIN
     Indication: ANTIBIOTIC THERAPY
     Route: 065
  5. RITUXIMAB. [Suspect]
     Active Substance: RITUXIMAB
     Indication: POLYMYOSITIS
     Route: 065
  6. RITUXIMAB. [Suspect]
     Active Substance: RITUXIMAB
     Route: 065
  7. PREDNISONE. [Suspect]
     Active Substance: PREDNISONE
     Route: 065
     Dates: start: 200106, end: 200606
  8. PREDNISONE. [Suspect]
     Active Substance: PREDNISONE
     Route: 065
     Dates: start: 200606
  9. METHOTREXATE. [Suspect]
     Active Substance: METHOTREXATE
     Dosage: PER WEEK
     Route: 030
     Dates: start: 200606, end: 200606
  10. PREDNISONE. [Suspect]
     Active Substance: PREDNISONE
     Route: 065
     Dates: start: 200606, end: 200606
  11. AZATHIOPRINE. [Concomitant]
     Active Substance: AZATHIOPRINE
     Indication: MYOSITIS
     Route: 065
     Dates: start: 199706, end: 200106
  12. METHOTREXATE. [Suspect]
     Active Substance: METHOTREXATE
     Dosage: PER WEEK
     Route: 030
     Dates: start: 200606
  13. METHOTREXATE. [Suspect]
     Active Substance: METHOTREXATE
     Indication: MYOSITIS
     Dosage: UPTO 35 MG PER WEEK.
     Route: 030
     Dates: start: 200106, end: 200606
  14. PREDNISONE. [Suspect]
     Active Substance: PREDNISONE
     Route: 065
     Dates: start: 200606
  15. PREDNISONE. [Suspect]
     Active Substance: PREDNISONE
     Dosage: THE STEROIDS WERE TAPERED TO 5 MG/DAY.
     Route: 065
     Dates: start: 199706

REACTIONS (5)
  - Thrombocytopenia [Unknown]
  - Mycobacterial infection [Recovering/Resolving]
  - Off label use [Unknown]
  - Osteomyelitis bacterial [Unknown]
  - Intentional product use issue [Unknown]

NARRATIVE: CASE EVENT DATE: 20060615
